FAERS Safety Report 20063533 (Version 1)
Quarter: 2021Q4

REPORT INFORMATION
  Report Type: Spontaneous
  Country: US (occurrence: None)
  Receive Date: 20211111
  Receipt Date: 20211111
  Transmission Date: 20220303
  Serious: Yes (Hospitalization)
  Sender: FDA-Public Use
  Company Number: None

PATIENT
  Sex: Female

DRUGS (29)
  1. AMBRISENTAN [Suspect]
     Active Substance: AMBRISENTAN
     Indication: Interstitial lung disease
     Route: 048
  2. AMBRISENTAN [Suspect]
     Active Substance: AMBRISENTAN
     Indication: Product used for unknown indication
     Route: 048
  3. AMLODIPINE [Concomitant]
  4. CELLCEPT [Concomitant]
  5. CETIRIZINE HCL [Concomitant]
  6. D-2000 MAXIMUM STRENGTH [Concomitant]
  7. FLONASE ALGY SPR [Concomitant]
  8. LORATADINE [Concomitant]
  9. LOVENOX INJ [Concomitant]
  10. MEPRON SUS [Concomitant]
  11. MONTELUKAST SODIUM [Concomitant]
  12. OFEV [Concomitant]
  13. OFEV CAP [Concomitant]
  14. OMEPRAZOLE [Concomitant]
  15. PANTOPRAZOLE [Concomitant]
  16. PLAQUENIL TAB [Concomitant]
  17. POLYETHYLENE GLYCOL [Concomitant]
  18. PREDNISONE [Concomitant]
  19. PROLIA SOL [Concomitant]
  20. SPIRONOLACT TAB [Concomitant]
  21. TADALAFIL [Concomitant]
  22. TADALAFIL TAB [Concomitant]
  23. VITAMIN B-12 [Concomitant]
  24. VITAMIN C TAB [Concomitant]
  25. VITAMIN D3 [Concomitant]
     Active Substance: CHOLECALCIFEROL
  26. VITAMIN D3 TAB [Concomitant]
  27. VITAMIN D3 SUPER STRENGTH [Concomitant]
  28. WIXELA INHUB AER [Concomitant]
  29. ZOFRAN TAB [Concomitant]

REACTIONS (1)
  - Lung transplant [None]

NARRATIVE: CASE EVENT DATE: 20211001
